FAERS Safety Report 25348361 (Version 2)
Quarter: 2025Q2

REPORT INFORMATION
  Report Type: Report from Study
  Country: US (occurrence: US)
  Receive Date: 20250522
  Receipt Date: 20250529
  Transmission Date: 20250716
  Serious: Yes (Hospitalization)
  Sender: TEVA
  Company Number: US-TEVA-VS-3333459

PATIENT
  Sex: Male

DRUGS (6)
  1. FENTANYL [Suspect]
     Active Substance: FENTANYL
     Indication: Product used for unknown indication
     Route: 065
  2. ONDANSETRON [Suspect]
     Active Substance: ONDANSETRON
     Indication: Drug withdrawal syndrome
     Route: 065
  3. LORAZEPAM [Suspect]
     Active Substance: LORAZEPAM
     Indication: Drug withdrawal syndrome
     Route: 065
  4. DIPHENHYDRAMINE HYDROCHLORIDE [Suspect]
     Active Substance: DIPHENHYDRAMINE HYDROCHLORIDE
     Indication: Drug withdrawal syndrome
     Route: 065
  5. DROPERIDOL [Suspect]
     Active Substance: DROPERIDOL
     Indication: Drug withdrawal syndrome
     Route: 065
  6. BUPRENORPHINE [Suspect]
     Active Substance: BUPRENORPHINE
     Indication: Drug withdrawal syndrome
     Route: 060

REACTIONS (12)
  - Drug withdrawal syndrome [Unknown]
  - Yawning [Unknown]
  - Hyperhidrosis [Unknown]
  - Anxiety [Unknown]
  - Tremor [Unknown]
  - Drug ineffective [Unknown]
  - Mydriasis [Unknown]
  - Abdominal discomfort [Unknown]
  - Pain [Unknown]
  - Piloerection [Unknown]
  - Restlessness [Unknown]
  - Rhinorrhoea [Unknown]
